FAERS Safety Report 13008722 (Version 1)
Quarter: 2016Q4

REPORT INFORMATION
  Report Type: Spontaneous
  Country: US (occurrence: US)
  Receive Date: 20161208
  Receipt Date: 20161208
  Transmission Date: 20170207
  Serious: Yes (Death)
  Sender: FDA-Public Use
  Company Number: US-NEXGEN PHARMA, INC.-1060555

PATIENT
  Sex: Male

DRUGS (1)
  1. CHENODIOL. [Suspect]
     Active Substance: CHENODIOL
     Indication: XANTHOMATOSIS
     Route: 048
     Dates: start: 20100212, end: 20161205

REACTIONS (1)
  - Death [Fatal]

NARRATIVE: CASE EVENT DATE: 20161205
